FAERS Safety Report 25933675 (Version 2)
Quarter: 2025Q4

REPORT INFORMATION
  Report Type: Report from Study
  Country: JP (occurrence: JP)
  Receive Date: 20251017
  Receipt Date: 20251021
  Transmission Date: 20260118
  Serious: Yes (Death)
  Sender: MERCK SHARP & DOHME LLC
  Company Number: JP-009507513-2340614

PATIENT
  Age: 76 Year
  Sex: Male
  Weight: 53.6 kg

DRUGS (3)
  1. NOXAFIL [Suspect]
     Active Substance: POSACONAZOLE
     Indication: Antifungal prophylaxis
     Dosage: DOSE DESCRIPTION : 300 MILLIGRAM, QD DAILY DOSE : 300 MILLIGRAM
     Route: 048
     Dates: start: 20230729, end: 20231016
  2. NOXAFIL [Suspect]
     Active Substance: POSACONAZOLE
     Indication: Antifungal prophylaxis
     Dosage: DOSE DESCRIPTION : 300 MILLIGRAM, QD DAILY DOSE : 600 MILLIGRAM
     Route: 048
     Dates: start: 20230722, end: 202307
  3. PIPERACILLIN SODIUM\TAZOBACTAM SODIUM [Concomitant]
     Active Substance: PIPERACILLIN SODIUM\TAZOBACTAM SODIUM
     Dates: end: 20230730

REACTIONS (1)
  - Acute myeloid leukaemia [Fatal]

NARRATIVE: CASE EVENT DATE: 20231016
